FAERS Safety Report 7031454-2 (Version None)
Quarter: 2010Q4

REPORT INFORMATION
  Report Type: 
  Country: None (occurrence: None)
  Receive Date: 20101006
  Receipt Date: 20100928
  Transmission Date: 20110411
  Serious: Yes (Other)
  Sender: FDA-Public Use
  Company Number: GB-ELI_LILLY_AND_COMPANY-GB201010000150

PATIENT
  Age: 66 Year
  Sex: Male

DRUGS (2)
  1. HUMULIN 70/30 [Suspect]
  2. MIXTARD HUMAN 70/30 [Concomitant]

REACTIONS (1)
  - URTICARIA [None]
